FAERS Safety Report 23193130 (Version 2)
Quarter: 2023Q4

REPORT INFORMATION
  Report Type: Spontaneous
  Country: IE (occurrence: IE)
  Receive Date: 20231116
  Receipt Date: 20231124
  Transmission Date: 20240110
  Serious: Yes (Other)
  Sender: FDA-Public Use
  Company Number: IE-TEVA-2023-IE-2944589

PATIENT
  Age: 6 Decade
  Sex: Male

DRUGS (13)
  1. DEXAMETHASONE [Suspect]
     Active Substance: DEXAMETHASONE
     Indication: Iridocyclitis
     Route: 057
  2. DEXAMETHASONE [Suspect]
     Active Substance: DEXAMETHASONE
     Indication: HLA-B*27 positive
  3. PREDNISOLONE ACETATE [Suspect]
     Active Substance: PREDNISOLONE ACETATE
     Indication: Iridocyclitis
     Route: 061
  4. PREDNISOLONE ACETATE [Suspect]
     Active Substance: PREDNISOLONE ACETATE
     Indication: HLA-B*27 positive
     Dosage: VARYING FREQUENCY FROM 4 TIMES A DAY TO HOURLY.
     Route: 061
  5. CYCLOPENTOLATE [Suspect]
     Active Substance: CYCLOPENTOLATE
     Indication: Iridocyclitis
     Dosage: 3 TIMES A DAY
     Route: 061
  6. CYCLOPENTOLATE [Suspect]
     Active Substance: CYCLOPENTOLATE
     Indication: HLA-B*27 positive
  7. BRINZOLAMIDE\TIMOLOL [Suspect]
     Active Substance: BRINZOLAMIDE\TIMOLOL
     Indication: Iridocyclitis
     Route: 061
  8. BRINZOLAMIDE\TIMOLOL [Suspect]
     Active Substance: BRINZOLAMIDE\TIMOLOL
     Indication: HLA-B*27 positive
  9. MAXITROL [Suspect]
     Active Substance: DEXAMETHASONE\NEOMYCIN SULFATE\POLYMYXIN B SULFATE
     Indication: Evidence based treatment
     Route: 061
  10. MAXITROL [Suspect]
     Active Substance: DEXAMETHASONE\NEOMYCIN SULFATE\POLYMYXIN B SULFATE
     Dosage: VARYING FREQUENCY FROM 4 TIMES A DAY TO HOURLY.
     Route: 061
  11. CHLORAMPHENICOL [Concomitant]
     Active Substance: CHLORAMPHENICOL
     Indication: Evidence based treatment
     Route: 061
  12. MYDRICAINE [Concomitant]
     Indication: Iridocyclitis
     Route: 057
  13. MYDRICAINE [Concomitant]
     Indication: HLA-B*27 positive

REACTIONS (8)
  - Iris bombe [Unknown]
  - Hyphaema [Unknown]
  - Cataract [Unknown]
  - Scleromalacia [Unknown]
  - Strabismus [Unknown]
  - Infective scleritis [Recovered/Resolved with Sequelae]
  - Moraxella infection [Recovered/Resolved with Sequelae]
  - Drug ineffective [Unknown]
